FAERS Safety Report 25584273 (Version 1)
Quarter: 2025Q3

REPORT INFORMATION
  Report Type: Report from Study
  Country: US (occurrence: US)
  Receive Date: 20250721
  Receipt Date: 20250721
  Transmission Date: 20251020
  Serious: No
  Sender: BIOCON
  Company Number: US-MYLANLABS-2023M1089112

PATIENT
  Sex: Male

DRUGS (2)
  1. FULPHILA [Suspect]
     Active Substance: PEGFILGRASTIM-JMDB
     Indication: Acute myeloid leukaemia
     Dosage: 1 DOSAGE FORM, QD
     Route: 065
  2. DEVICE [Suspect]
     Active Substance: DEVICE
     Indication: Acute myeloid leukaemia

REACTIONS (1)
  - Off label use [Unknown]
